FAERS Safety Report 6860245-8 (Version None)
Quarter: 2010Q3

REPORT INFORMATION
  Report Type: 
  Country: None (occurrence: None)
  Receive Date: 20100720
  Receipt Date: 20100707
  Transmission Date: 20110219
  Serious: Yes (Hospitalization, Other)
  Sender: FDA-Public Use
  Company Number: PHHY2010AT44401

PATIENT
  Sex: Female

DRUGS (1)
  1. RASILEZ HCT [Suspect]
     Dosage: 300/25 MG
     Dates: start: 20100527

REACTIONS (3)
  - ANGIOEDEMA [None]
  - PNEUMONIA [None]
  - PULMONARY EMBOLISM [None]
